FAERS Safety Report 5592896-5 (Version None)
Quarter: 2008Q1

REPORT INFORMATION
  Report Type: 
  Country: None (occurrence: None)
  Receive Date: 20080116
  Receipt Date: 20080103
  Transmission Date: 20080703
  Serious: Yes (Other)
  Sender: FDA-Public Use
  Company Number: US-AMGEN-US246557

PATIENT
  Sex: Male
  Weight: 79.5 kg

DRUGS (3)
  1. PROCRIT [Suspect]
     Indication: MYELODYSPLASTIC SYNDROME
     Route: 058
     Dates: end: 20070701
  2. EXJADE [Concomitant]
  3. LENALIDOMIDE [Concomitant]
     Dates: end: 20070808

REACTIONS (8)
  - ADVERSE DRUG REACTION [None]
  - CARDIAC FAILURE [None]
  - DRUG INEFFECTIVE [None]
  - EJECTION FRACTION ABNORMAL [None]
  - HAEMOCHROMATOSIS [None]
  - IRON OVERLOAD [None]
  - LEFT VENTRICULAR FAILURE [None]
  - LIVER FUNCTION TEST ABNORMAL [None]
